FAERS Safety Report 8240361-9 (Version None)
Quarter: 2012Q1

REPORT INFORMATION
  Report Type: 
  Country: None (occurrence: None)
  Receive Date: 20120312
  Receipt Date: 20110614
  Transmission Date: 20120608
  Serious: Yes (Other)
  Sender: FDA-Public Use
  Company Number: 2011SP027700

PATIENT
  Sex: Male

DRUGS (4)
  1. SAPHRIS [Suspect]
     Indication: DELUSION
     Dosage: 5 MG; BID; SL; 5 MG;  QD; SL
     Route: 060
     Dates: end: 20110705
  2. SAPHRIS [Suspect]
     Indication: BIPOLAR DISORDER
     Dosage: 5 MG; BID; SL; 5 MG;  QD; SL
     Route: 060
     Dates: end: 20110705
  3. SAPHRIS [Suspect]
     Indication: DELUSION
     Dosage: 5 MG; BID; SL; 5 MG;  QD; SL
     Route: 060
     Dates: start: 20110614
  4. SAPHRIS [Suspect]
     Indication: BIPOLAR DISORDER
     Dosage: 5 MG; BID; SL; 5 MG;  QD; SL
     Route: 060
     Dates: start: 20110614

REACTIONS (5)
  - DYSKINESIA [None]
  - CANDIDIASIS [None]
  - INAPPROPRIATE SCHEDULE OF DRUG ADMINISTRATION [None]
  - UNDERDOSE [None]
  - ANXIETY [None]
